FAERS Safety Report 8463657-4 (Version None)
Quarter: 2012Q2

REPORT INFORMATION
  Report Type: 
  Country: None (occurrence: None)
  Receive Date: 20120625
  Receipt Date: 20120614
  Transmission Date: 20120825
  Serious: Yes (Other)
  Sender: FDA-Public Use
  Company Number: US-ASTRAZENECA-2005UW17789

PATIENT
  Age: 55 Year
  Sex: Female

DRUGS (2)
  1. ZOMIG [Suspect]
     Indication: MIGRAINE
     Route: 048
  2. IMITREX [Concomitant]

REACTIONS (4)
  - BRAIN INJURY [None]
  - DRUG INEFFECTIVE [None]
  - MIGRAINE [None]
  - CEREBROVASCULAR ACCIDENT [None]
